FAERS Safety Report 25387365 (Version 1)
Quarter: 2025Q2

REPORT INFORMATION
  Report Type: Report from Study
  Country: US (occurrence: US)
  Receive Date: 20250602
  Receipt Date: 20250602
  Transmission Date: 20250717
  Serious: Yes (Disabling, Other)
  Sender: ABBVIE
  Company Number: US-ALLERGAN-2304940US

PATIENT
  Sex: Female

DRUGS (1)
  1. VIBERZI [Suspect]
     Active Substance: ELUXADOLINE
     Indication: Product used for unknown indication
     Route: 048

REACTIONS (3)
  - Injury [Unknown]
  - Fall [Unknown]
  - Incorrect dose administered [Unknown]
